FAERS Safety Report 17143569 (Version 3)
Quarter: 2020Q2

REPORT INFORMATION
  Report Type: Report from Study
  Country: BR (occurrence: BR)
  Receive Date: 20191211
  Receipt Date: 20200612
  Transmission Date: 20200713
  Serious: Yes (Hospitalization)
  Sender: FDA-Public Use
  Company Number: BR-AMERICAN REGENT INC-20191445

PATIENT
  Age: 32 Year
  Sex: Male

DRUGS (14)
  1. ENTYVIO [Suspect]
     Active Substance: VEDOLIZUMAB
     Dosage: 1 DOSAGE FORM, ON WEEKS 0, 2, 6 AND 8
     Dates: start: 20170919
  2. ENTYVIO [Suspect]
     Active Substance: VEDOLIZUMAB
     Dosage: 1 DOSAGE FORM, ON WEEKS 0, 2, 6 AND 8
     Dates: start: 20180626
  3. ENTYVIO [Suspect]
     Active Substance: VEDOLIZUMAB
     Indication: CROHN^S DISEASE
     Dosage: 1 DOSAGE FORM, ON WEEKS 0, 2, 6 AND 8
     Dates: start: 20170906
  4. ENTYVIO [Suspect]
     Active Substance: VEDOLIZUMAB
     Dosage: 1 DOSAGE FORM, ON WEEKS 0, 2, 6 AND 8
     Route: 065
     Dates: start: 20190131
  5. ENTYVIO [Suspect]
     Active Substance: VEDOLIZUMAB
     Dosage: 1 DOSAGE FORM, ON WEEKS 0, 2, 6 AND 8
     Dates: start: 20180626
  6. ENTYVIO [Suspect]
     Active Substance: VEDOLIZUMAB
     Dosage: 1 DOSAGE FORM, EVERY 4 WEEKS
     Route: 065
     Dates: start: 20190515
  7. ENTYVIO [Suspect]
     Active Substance: VEDOLIZUMAB
     Dosage: 1 DOSAGE FORM, ON WEEKS 0, 2, 6 AND 8
     Dates: start: 20180315
  8. CITONEURIN [Concomitant]
     Active Substance: CYANOCOBALAMIN\PYRIDOXINE HYDROCHLORIDE\THIAMINE
     Indication: PRODUCT USED FOR UNKNOWN INDICATION
     Dosage: 3 IN 1 WEEK
     Route: 065
  9. AMIODARONE [Concomitant]
     Active Substance: AMIODARONE
     Indication: CARDIOMYOPATHY
     Dosage: 400 MG (200 MG, 2 IN 1 D)
     Route: 065
  10. ENTYVIO [Suspect]
     Active Substance: VEDOLIZUMAB
     Dosage: 1 DOSAGE FORM, ON WEEKS 0, 2, 6 AND 8
     Dates: start: 20180828
  11. VENOFER [Suspect]
     Active Substance: IRON SUCROSE
     Indication: ANAEMIA
     Dosage: 200 MG (2 AMPULES), 1 IN 1 WK
     Route: 042
  12. VENOFER [Suspect]
     Active Substance: IRON SUCROSE
     Dosage: 600 MG (6 AMPOULES), 1 IN 1 WEEK
     Route: 042
     Dates: start: 2019
  13. ENTYVIO [Suspect]
     Active Substance: VEDOLIZUMAB
     Dosage: 1 DOSAGE FORM, ON WEEKS 0, 2, 6 AND 8
     Dates: start: 20171019
  14. ATENOLOL. [Concomitant]
     Active Substance: ATENOLOL
     Indication: CARDIOMYOPATHY
     Dosage: 100 MG (50 MG, 2 IN 1 D)
     Route: 065

REACTIONS (5)
  - Swelling face [Recovered/Resolved]
  - Ageusia [Recovered/Resolved]
  - Anosmia [Recovered/Resolved]
  - Crohn^s disease [Recovered/Resolved]
  - Pyrexia [Recovered/Resolved]

NARRATIVE: CASE EVENT DATE: 201709
